FAERS Safety Report 7492419-X (Version None)
Quarter: 2011Q2

REPORT INFORMATION
  Report Type: 
  Country: None (occurrence: None)
  Receive Date: 20110519
  Receipt Date: 20110516
  Transmission Date: 20111010
  Serious: Yes (Life-Threatening)
  Sender: FDA-Public Use
  Company Number: US-ABBOTT-11P-163-0725767-00

PATIENT
  Sex: Male

DRUGS (3)
  1. HUMIRA [Suspect]
  2. COMMERCIAL HUMIRA [Concomitant]
     Indication: PSORIASIS
     Route: 058
     Dates: start: 20090410
  3. HUMIRA [Suspect]
     Indication: PSORIASIS
     Route: 058
     Dates: start: 20100722

REACTIONS (1)
  - MYOCARDIAL INFARCTION [None]
